FAERS Safety Report 8487823-7 (Version None)
Quarter: 2012Q2

REPORT INFORMATION
  Report Type: 
  Country: None (occurrence: None)
  Receive Date: 20120402
  Receipt Date: 20101224
  Transmission Date: 20120825
  Serious: Yes (Other)
  Sender: FDA-Public Use
  Company Number: PHHY2010US87972

PATIENT
  Sex: Male

DRUGS (4)
  1. TEKTURNA [Suspect]
     Dosage: 150 MG
  2. ASPIRIN [Concomitant]
  3. EXFORGE [Suspect]
  4. VITAMINS (NO INGREDIENTS/SUBSTANCES) [Concomitant]

REACTIONS (3)
  - MOVEMENT DISORDER [None]
  - HYPOTENSION [None]
  - BLOOD PRESSURE INADEQUATELY CONTROLLED [None]
